FAERS Safety Report 18024764 (Version 1)
Quarter: 2020Q3

REPORT INFORMATION
  Report Type: Spontaneous
  Country: US (occurrence: US)
  Receive Date: 20200715
  Receipt Date: 20200715
  Transmission Date: 20201103
  Serious: Yes (Hospitalization)
  Sender: FDA-Public Use
  Company Number: None

PATIENT
  Age: 71 Year
  Sex: Male
  Weight: 104.4 kg

DRUGS (5)
  1. REMDESIVIR. [Suspect]
     Active Substance: REMDESIVIR
     Indication: COVID-19
     Route: 040
     Dates: start: 20200713, end: 20200714
  2. CEFTRIAXONE 1 GRAM IVPB EVERY 12 HOURS [Concomitant]
     Dates: start: 20200714, end: 20200714
  3. AZITHROMYCIN 500 MG IVPB ONCE [Concomitant]
     Dates: start: 20200712, end: 20200712
  4. AZITHROMYCIN 250 MG PO DAILY [Concomitant]
     Dates: start: 20200713, end: 20200714
  5. AZITHROMYCIN 500 MG IVPB EVERY 24 HOURS [Concomitant]
     Dates: start: 20200714, end: 20200714

REACTIONS (1)
  - Respiratory arrest [None]

NARRATIVE: CASE EVENT DATE: 20200715
